FAERS Safety Report 4565469-0 (Version None)
Quarter: 2005Q1

REPORT INFORMATION
  Report Type: 
  Country: None (occurrence: None)
  Receive Date: 20050126
  Receipt Date: 20050119
  Transmission Date: 20050727
  Serious: Yes (Death, Hospitalization)
  Sender: FDA-Public Use
  Company Number: 2005UW00955

PATIENT
  Age: 76 Year
  Sex: Female
  Weight: 63.9572 kg

DRUGS (7)
  1. PRILOSEC [Suspect]
     Indication: DYSPHAGIA
     Dates: start: 20040101
  2. PRILOSEC [Suspect]
     Indication: GASTROOESOPHAGEAL REFLUX DISEASE
     Dates: start: 20040101
  3. PREVACID [Suspect]
     Indication: DYSPHAGIA
     Dosage: 30 M G PO
     Route: 048
     Dates: start: 20041012, end: 20040101
  4. PREVACID [Suspect]
     Indication: GASTROOESOPHAGEAL REFLUX DISEASE
     Dosage: 30 M G PO
     Route: 048
     Dates: start: 20041012, end: 20040101
  5. LITHIUM [Concomitant]
  6. ASPIRIN [Concomitant]
  7. ACTONEL [Concomitant]

REACTIONS (1)
  - HEPATITIS B [None]
